FAERS Safety Report 5607339-2 (Version None)
Quarter: 2008Q1

REPORT INFORMATION
  Report Type: 
  Country: None (occurrence: None)
  Receive Date: 20080130
  Receipt Date: 20080123
  Transmission Date: 20080703
  Serious: Yes (Other)
  Sender: FDA-Public Use
  Company Number: AT-JNJFOC-20080105775

PATIENT
  Age: 56 Year
  Sex: Male

DRUGS (8)
  1. RISPERDAL [Suspect]
     Indication: DRUG USE FOR UNKNOWN INDICATION
     Route: 048
  2. ZYPREXA [Suspect]
     Route: 048
  3. ZYPREXA [Suspect]
     Indication: DRUG USE FOR UNKNOWN INDICATION
     Route: 048
  4. NOZINAN [Concomitant]
     Route: 048
  5. NOZINAN [Concomitant]
     Route: 048
  6. NOZINAN [Concomitant]
     Route: 048
  7. NOZINAN [Concomitant]
     Route: 048
  8. NOZINAN [Concomitant]
     Route: 048

REACTIONS (2)
  - HYPERLIPIDAEMIA [None]
  - WEIGHT INCREASED [None]
